FAERS Safety Report 22140054 (Version 1)
Quarter: 2023Q1

REPORT INFORMATION
  Report Type: Report from Study
  Country: JP (occurrence: JP)
  Receive Date: 20230327
  Receipt Date: 20230327
  Transmission Date: 20230417
  Serious: Yes (Death)
  Sender: FDA-Public Use
  Company Number: JP-SERVIER-S23002808

PATIENT
  Age: 92 Year
  Sex: Male
  Weight: 48 kg

DRUGS (1)
  1. IVABRADINE [Suspect]
     Active Substance: IVABRADINE
     Indication: Cardiac failure chronic
     Dosage: 2.5 MILLIGRAM, QD
     Route: 065
     Dates: start: 20201221

REACTIONS (2)
  - Death [Fatal]
  - Underdose [Fatal]

NARRATIVE: CASE EVENT DATE: 20201221
